FAERS Safety Report 6359711-3 (Version None)
Quarter: 2009Q3

REPORT INFORMATION
  Report Type: 
  Country: None (occurrence: None)
  Receive Date: 20090917
  Receipt Date: 20090904
  Transmission Date: 20100115
  Serious: Yes (Hospitalization)
  Sender: FDA-Public Use
  Company Number: JP-PFIZER INC-2009256630

PATIENT
  Age: 68 Year

DRUGS (7)
  1. *CAPECITABINE [Suspect]
     Indication: BREAST CANCER RECURRENT
     Dosage: 1450 MG, 2X/DAY
     Dates: start: 20090602, end: 20090820
  2. SUNITINIB MALATE [Suspect]
     Indication: BREAST CANCER RECURRENT
     Dosage: 37.5 MG, 1X/DAY
     Route: 048
     Dates: start: 20090602, end: 20090622
  3. SUNITINIB MALATE [Suspect]
     Dosage: 25 MG, 1X/DAY
     Route: 048
     Dates: start: 20090623, end: 20090713
  4. SUNITINIB MALATE [Suspect]
     Dosage: 25 MG, 1X/DAY
     Route: 048
     Dates: start: 20090804, end: 20090813
  5. PYRIDOXAL [Concomitant]
     Dosage: 30 MG, 2X/DAY
     Route: 048
     Dates: start: 20090602
  6. LOXOPROFEN [Concomitant]
     Indication: BACK PAIN
     Dosage: 60 MG, AS NEEDED
     Dates: start: 20090609
  7. REBAMIPIDE [Concomitant]
     Indication: NAUSEA
     Dosage: 100 MG, 3X/DAY
     Route: 048
     Dates: start: 20090609

REACTIONS (2)
  - DECREASED APPETITE [None]
  - MALAISE [None]
